FAERS Safety Report 6187467-6 (Version None)
Quarter: 2009Q2

REPORT INFORMATION
  Report Type: 
  Country: None (occurrence: None)
  Receive Date: 20090512
  Receipt Date: 20090508
  Transmission Date: 20091009
  Serious: Yes (Other)
  Sender: FDA-Public Use
  Company Number: BE-BRISTOL-MYERS SQUIBB COMPANY-14563308

PATIENT
  Age: 80 Year
  Sex: Female

DRUGS (2)
  1. ABILIFY [Suspect]
     Indication: DEPRESSION
     Route: 048
     Dates: start: 20080118
  2. EFFEXOR [Suspect]
     Dosage: EFEXOR EXEL 150
     Dates: start: 20061123

REACTIONS (2)
  - DELIRIUM [None]
  - HYPERTENSIVE CRISIS [None]
